FAERS Safety Report 5647053-0 (Version None)
Quarter: 2008Q1

REPORT INFORMATION
  Report Type: 
  Country: None (occurrence: None)
  Receive Date: 20080228
  Receipt Date: 20080214
  Transmission Date: 20080703
  Serious: Yes (Death, Other)
  Sender: FDA-Public Use
  Company Number: 2008US000581

PATIENT
  Age: 77 Year
  Sex: Female

DRUGS (5)
  1. AMBISOME [Suspect]
     Indication: CANDIDIASIS
     Dosage: 100 MG, UID/QD, IV NOS
     Route: 042
     Dates: start: 20071030, end: 20071105
  2. POTASSIUM CHLORIDE [Concomitant]
  3. NEOPHAGEN (GLYCYRRHIZINATE POTASSIUM) [Concomitant]
  4. INTEBAN (INDOMETHACIN) [Concomitant]
  5. VITAJECT (THIAMINE HYDROCHLORIDE) [Concomitant]

REACTIONS (5)
  - ALANINE AMINOTRANSFERASE INCREASED [None]
  - ASPARTATE AMINOTRANSFERASE INCREASED [None]
  - BLOOD BILIRUBIN INCREASED [None]
  - HEPATIC FUNCTION ABNORMAL [None]
  - LUNG ADENOCARCINOMA [None]
